FAERS Safety Report 10008074 (Version 8)
Quarter: 2015Q4

REPORT INFORMATION
  Report Type: Spontaneous
  Country: GB (occurrence: GB)
  Receive Date: 20140313
  Receipt Date: 20151029
  Transmission Date: 20160304
  Serious: Yes (Other)
  Sender: FDA-Public Use
  Company Number: GB-AMGEN-GBRSP2013046315

PATIENT
  Age: 82 Year
  Sex: Male

DRUGS (1)
  1. NPLATE [Suspect]
     Active Substance: ROMIPLOSTIM
     Indication: IMMUNE THROMBOCYTOPENIC PURPURA
     Dosage: 100 MUG, QWK
     Route: 058

REACTIONS (16)
  - Pain [Recovered/Resolved]
  - Cough [Unknown]
  - Dyspnoea [Unknown]
  - Hot flush [Unknown]
  - Fatigue [Not Recovered/Not Resolved]
  - Weight decreased [Not Recovered/Not Resolved]
  - Depressed mood [Unknown]
  - Fall [Unknown]
  - Lower respiratory tract infection [Unknown]
  - Productive cough [Unknown]
  - Lung disorder [Unknown]
  - Sleep disorder [Unknown]
  - Tremor [Not Recovered/Not Resolved]
  - Wheezing [Unknown]
  - Malaise [Unknown]
  - Decreased appetite [Unknown]

NARRATIVE: CASE EVENT DATE: 201510
